FAERS Safety Report 7036362-9 (Version None)
Quarter: 2010Q4

REPORT INFORMATION
  Report Type: 
  Country: None (occurrence: None)
  Receive Date: 20101008
  Receipt Date: 20101005
  Transmission Date: 20110411
  Serious: Yes (Hospitalization)
  Sender: FDA-Public Use
  Company Number: US-MERCK-0911USA04324

PATIENT
  Age: 55 Year
  Sex: Female
  Weight: 63 kg

DRUGS (4)
  1. FOSAMAX [Suspect]
     Indication: OSTEOPOROSIS
     Route: 048
     Dates: start: 20040811, end: 20080101
  2. FOSAMAX PLUS D [Suspect]
     Indication: OSTEOPOROSIS
     Route: 048
     Dates: start: 20040101
  3. INSULIN [Concomitant]
     Indication: DIABETES MELLITUS
     Route: 065
     Dates: start: 19820101
  4. COUMADIN [Concomitant]
     Indication: CARDIAC VALVE PROSTHESIS USER
     Route: 048

REACTIONS (18)
  - BLOOD CHOLESTEROL INCREASED [None]
  - BRUXISM [None]
  - CEREBROVASCULAR ACCIDENT [None]
  - CONTUSION [None]
  - DENTAL CARIES [None]
  - DIABETIC COMPLICATION [None]
  - FRACTURE [None]
  - HYPERTENSION [None]
  - LIP OEDEMA [None]
  - LOOSE TOOTH [None]
  - ORAL PAIN [None]
  - POST PROCEDURAL OEDEMA [None]
  - TEMPOROMANDIBULAR JOINT SYNDROME [None]
  - TOOTH DISORDER [None]
  - TOOTH FRACTURE [None]
  - TOOTH LOSS [None]
  - TOOTHACHE [None]
  - WEIGHT DECREASED [None]
